FAERS Safety Report 9889433 (Version 1)
Quarter: 2014Q1

REPORT INFORMATION
  Report Type: Spontaneous
  Country: FR (occurrence: FR)
  Receive Date: 20140211
  Receipt Date: 20140211
  Transmission Date: 20141002
  Serious: Yes (Other)
  Sender: FDA-Public Use
  Company Number: FR-ASTRAZENECA-2014SE08199

PATIENT
  Age: 31697 Day
  Sex: Female

DRUGS (7)
  1. INEXIUM [Suspect]
     Route: 048
     Dates: start: 20131014, end: 20131016
  2. INEXIUM [Suspect]
     Route: 048
     Dates: start: 20131018, end: 20131018
  3. PERFALGAN [Concomitant]
  4. ISOPTINE [Concomitant]
  5. ACUPAN [Concomitant]
  6. KARDEGIC [Concomitant]
  7. CALCIPARINE [Concomitant]

REACTIONS (2)
  - Condition aggravated [Recovered/Resolved]
  - Hyponatraemia [Recovered/Resolved]
